FAERS Safety Report 8588761-1 (Version None)
Quarter: 2012Q3

REPORT INFORMATION
  Report Type: 
  Country: None (occurrence: None)
  Receive Date: 20120813
  Receipt Date: 20120810
  Transmission Date: 20120928
  Serious: Yes (Death, Other)
  Sender: FDA-Public Use
  Company Number: PHHY2010JP12245

PATIENT
  Age: 62 Year
  Sex: Male

DRUGS (2)
  1. PREDNISOLONE [Concomitant]
     Dosage: 10MG/DAY
     Dates: start: 20051101
  2. ZOMETA [Suspect]
     Indication: METASTASES TO BONE
     Dosage: 4 MG, EVERY 4 WEEKS
     Route: 042
     Dates: start: 20070206, end: 20070711

REACTIONS (8)
  - OSTEONECROSIS OF JAW [None]
  - GINGIVAL PAIN [None]
  - SECONDARY SEQUESTRUM [None]
  - PROSTATE CANCER [None]
  - BACTERIAL INFECTION [None]
  - GINGIVAL SWELLING [None]
  - EXPOSED BONE IN JAW [None]
  - TOOTHACHE [None]
